FAERS Safety Report 11491577 (Version 6)
Quarter: 2021Q4

REPORT INFORMATION
  Report Type: Spontaneous
  Country: JP (occurrence: JP)
  Receive Date: 20150910
  Receipt Date: 20211005
  Transmission Date: 20220303
  Serious: Yes (Hospitalization, Disabling, Other)
  Sender: FDA-Public Use
  Company Number: JP-BRISTOL-MYERS SQUIBB COMPANY-BMS-2015-060112

PATIENT
  Age: 65 Year
  Sex: Male
  Weight: 52 kg

DRUGS (8)
  1. ELIQUIS [Suspect]
     Active Substance: APIXABAN
     Indication: Cerebrovascular accident prophylaxis
     Dosage: 5 MG, BID
     Route: 048
     Dates: end: 20150817
  2. ELIQUIS [Suspect]
     Active Substance: APIXABAN
     Dosage: 5 MILLIGRAM, BID
     Route: 048
     Dates: start: 20150821, end: 20150823
  3. HEPARIN SODIUM [Suspect]
     Active Substance: HEPARIN SODIUM
     Indication: Preoperative care
     Dosage: 10000 IU, QD
     Route: 041
     Dates: start: 20150817, end: 20150819
  4. HEPARIN SODIUM [Suspect]
     Active Substance: HEPARIN SODIUM
     Dosage: 12000 INTERNATIONAL UNIT, QD
     Route: 041
     Dates: start: 20150819, end: 20150820
  5. HEPARIN SODIUM [Suspect]
     Active Substance: HEPARIN SODIUM
     Dosage: 12000 INTERNATIONAL UNIT, QD
     Route: 041
     Dates: start: 20150821, end: 20150822
  6. PHENYTOIN [Concomitant]
     Active Substance: PHENYTOIN
     Indication: Facial spasm
     Dosage: UNK
     Route: 065
     Dates: start: 20150824, end: 20150901
  7. LEVETIRACETAM [Concomitant]
     Active Substance: LEVETIRACETAM
     Indication: Facial spasm
     Dosage: UNK
     Route: 065
     Dates: start: 20150824, end: 20150901
  8. MIDAZOLAM [Concomitant]
     Active Substance: MIDAZOLAM
     Indication: Sedation
     Dosage: UNK
     Route: 065
     Dates: start: 20150824, end: 20150901

REACTIONS (8)
  - Subarachnoid haemorrhage [Recovered/Resolved with Sequelae]
  - Subdural haemorrhage [Unknown]
  - Extradural haematoma [Unknown]
  - Muscle haemorrhage [Unknown]
  - Drug-induced liver injury [Recovered/Resolved]
  - Cerebral haemorrhage [Unknown]
  - Seizure [Unknown]
  - Epistaxis [Recovered/Resolved]

NARRATIVE: CASE EVENT DATE: 20150823
